FAERS Safety Report 5618270-0 (Version None)
Quarter: 2008Q1

REPORT INFORMATION
  Report Type: 
  Country: None (occurrence: None)
  Receive Date: 20080206
  Receipt Date: 20080206
  Transmission Date: 20080703
  Serious: Yes (Other)
  Sender: FDA-Public Use
  Company Number: None

PATIENT
  Age: 67 Year
  Sex: Female
  Weight: 67.1324 kg

DRUGS (1)
  1. CHANTIX [Suspect]
     Indication: SMOKING CESSATION THERAPY
     Dosage: AS PRESCRIBED BY KIT
     Dates: start: 20070408, end: 20070508

REACTIONS (8)
  - AGGRESSION [None]
  - APATHY [None]
  - BLOOD PRESSURE INCREASED [None]
  - IRRITABILITY [None]
  - MOOD SWINGS [None]
  - NERVOUSNESS [None]
  - PERSONALITY CHANGE [None]
  - VIOLENCE-RELATED SYMPTOM [None]
